FAERS Safety Report 24164019 (Version 1)
Quarter: 2024Q3

REPORT INFORMATION
  Report Type: Spontaneous
  Country: BR (occurrence: BR)
  Receive Date: 20240801
  Receipt Date: 20240801
  Transmission Date: 20241017
  Serious: Yes (Life-Threatening, Other)
  Sender: SANDOZ
  Company Number: BR-002147023-NVSC2024BR139081

PATIENT
  Age: 61 Year
  Sex: Female
  Weight: 85.6 kg

DRUGS (8)
  1. ACYCLOVIR [Suspect]
     Active Substance: ACYCLOVIR
     Dosage: 400 MG Q12H (EVERY 12 HOURS)
     Route: 065
  2. ACYCLOVIR [Suspect]
     Active Substance: ACYCLOVIR
     Indication: Prophylaxis
     Dosage: 500 MG, Q12H, (EVERY 12  HOURS)
     Route: 065
  3. CYCLOSPORINE [Suspect]
     Active Substance: CYCLOSPORINE
     Dosage: 180 MG, QD
     Route: 040
     Dates: start: 20240502, end: 20240512
  4. CYCLOSPORINE [Suspect]
     Active Substance: CYCLOSPORINE
     Indication: Immunosuppressant drug level
     Dosage: UNK, (50, MG/ML)
     Route: 065
     Dates: start: 20240502
  5. METAMIZOLE SODIUM [Concomitant]
     Active Substance: METAMIZOLE SODIUM
     Indication: Pain
     Dosage: 1000 MG, Q6H, (EVERY 6 HOURS)
     Route: 065
     Dates: start: 20240430, end: 20240512
  6. METAMIZOLE SODIUM [Concomitant]
     Active Substance: METAMIZOLE SODIUM
     Indication: Pyrexia
  7. URSODIOL [Concomitant]
     Active Substance: URSODIOL
     Indication: Prophylaxis
     Dosage: 300 MG, Q12H, (EVERY 12 HOURS)
     Route: 065
  8. VORICONAZOLE [Concomitant]
     Active Substance: VORICONAZOLE
     Indication: Prophylaxis
     Dosage: 200 MG, Q12H, (EVERY 12 HOURS)
     Route: 065

REACTIONS (17)
  - Renal impairment [Recovered/Resolved]
  - Blood creatinine increased [Unknown]
  - Erythema [Recovered/Resolved]
  - Hypotension [Unknown]
  - Heart rate increased [Unknown]
  - Oxygen saturation decreased [Unknown]
  - Respiratory rate [Unknown]
  - Blood creatinine [Unknown]
  - Blood creatinine [Unknown]
  - Blood creatinine [Unknown]
  - Blood creatinine [Unknown]
  - Blood creatinine [Unknown]
  - Blood creatinine [Unknown]
  - Blood creatinine [Unknown]
  - Blood creatinine [Unknown]
  - Blood creatinine [Unknown]
  - Blood creatinine [Unknown]

NARRATIVE: CASE EVENT DATE: 20240503
